FAERS Safety Report 8059442-8 (Version None)
Quarter: 2012Q1

REPORT INFORMATION
  Report Type: 
  Country: None (occurrence: None)
  Receive Date: 20120120
  Receipt Date: 20120118
  Transmission Date: 20120608
  Serious: Yes (Hospitalization)
  Sender: FDA-Public Use
  Company Number: IT-ROCHE-1031789

PATIENT
  Sex: Female

DRUGS (5)
  1. FLUOROURACIL [Suspect]
     Indication: COLON CANCER
     Route: 042
     Dates: start: 20111207, end: 20120106
  2. IRINOTECAN HCL [Suspect]
     Indication: COLON CANCER
     Route: 042
     Dates: start: 20111207, end: 20120106
  3. PANTOPRAZOLE SODIUM [Concomitant]
     Route: 048
  4. RAMIPRIL [Concomitant]
     Route: 048
  5. AVASTIN [Suspect]
     Indication: COLON CANCER
     Route: 042
     Dates: start: 20111207, end: 20120106

REACTIONS (2)
  - HYPOCALCAEMIA [None]
  - HYPOKALAEMIA [None]
